FAERS Safety Report 6238152-3 (Version None)
Quarter: 2009Q2

REPORT INFORMATION
  Report Type: 
  Country: None (occurrence: None)
  Receive Date: 20090622
  Receipt Date: 20090506
  Transmission Date: 20091009
  Serious: Yes (Other)
  Sender: FDA-Public Use
  Company Number: US-JNJFOC-20090605915

PATIENT
  Age: 55 Year
  Sex: Female

DRUGS (18)
  1. FENTANYL [Suspect]
     Indication: DRUG USE FOR UNKNOWN INDICATION
     Route: 062
  2. LINEZOLID [Suspect]
     Indication: DRUG USE FOR UNKNOWN INDICATION
     Route: 042
  3. DULOXETINE HYDROCHLORIDE [Suspect]
     Indication: DRUG USE FOR UNKNOWN INDICATION
     Route: 065
  4. GABAPENTIN [Concomitant]
     Route: 065
  5. FENTANYL [Concomitant]
     Indication: BREAKTHROUGH PAIN
     Dosage: EVERY 3 HOURS AS NEEDED
     Route: 048
  6. PIPERACILLIN [Concomitant]
     Route: 065
  7. ALENDRONATE SODIUM [Concomitant]
     Route: 065
  8. BACLOFEN [Concomitant]
     Route: 065
  9. FLUCONAZOLE [Concomitant]
     Route: 065
  10. FUROSEMIDE [Concomitant]
     Route: 065
  11. HYDROMORPHONE [Concomitant]
     Route: 065
  12. LANSOPRAZOLE [Concomitant]
     Route: 065
  13. LIDOCAINE [Concomitant]
     Route: 065
  14. MULTI-VITAMINS [Concomitant]
     Route: 065
  15. NYSTATIN [Concomitant]
     Route: 048
  16. CALCIUM [Concomitant]
     Route: 065
  17. QUETIAPINE FUMARATE [Concomitant]
     Indication: INSOMNIA
     Route: 065
  18. VANCOMYCIN [Concomitant]
     Route: 065

REACTIONS (1)
  - SEROTONIN SYNDROME [None]
